FAERS Safety Report 8162694-7 (Version None)
Quarter: 2012Q1

REPORT INFORMATION
  Report Type: 
  Country: None (occurrence: None)
  Receive Date: 20120224
  Receipt Date: 20120222
  Transmission Date: 20120608
  Serious: Yes (Other)
  Sender: FDA-Public Use
  Company Number: US-SHIRE-ALL1-2012-01061

PATIENT
  Sex: Male
  Weight: 29.025 kg

DRUGS (7)
  1. INTUNIV [Suspect]
     Indication: AUTISM SPECTRUM DISORDER
  2. INTUNIV [Suspect]
     Indication: ATTENTION DEFICIT/HYPERACTIVITY DISORDER
     Dosage: 1 MG, 1X/DAY:QD
     Route: 048
     Dates: start: 20110501, end: 20120101
  3. MELATONIN [Concomitant]
     Indication: INSOMNIA
     Dosage: 6 MG, 1X/DAY:QD
     Route: 048
     Dates: start: 20090101
  4. RISPERDAL [Concomitant]
     Indication: OPPOSITIONAL DEFIANT DISORDER
     Dosage: 0.25 MG, 1X/DAY:QD IN AM
     Route: 048
     Dates: start: 20110101, end: 20120101
  5. RISPERDAL [Concomitant]
     Dosage: UNK, UNKNOWN
     Route: 065
     Dates: start: 20120101
  6. RISPERDAL [Concomitant]
     Indication: AUTISM SPECTRUM DISORDER
     Dosage: 0.5 MG, 1X/DAY:QD IN PM
     Route: 048
     Dates: start: 20110101, end: 20120101
  7. INTUNIV [Suspect]
     Indication: OPPOSITIONAL DEFIANT DISORDER

REACTIONS (1)
  - SUICIDAL IDEATION [None]
